FAERS Safety Report 7791314-6 (Version None)
Quarter: 2011Q4

REPORT INFORMATION
  Report Type: 
  Country: None (occurrence: None)
  Receive Date: 20111003
  Receipt Date: 20110919
  Transmission Date: 20120403
  Serious: No
  Sender: FDA-Public Use
  Company Number: US-BIOGENIDEC-2011BI036040

PATIENT
  Age: 49 Year
  Sex: Female

DRUGS (1)
  1. AVONEX [Suspect]
     Indication: MULTIPLE SCLEROSIS
     Route: 030
     Dates: start: 20020703

REACTIONS (5)
  - VOMITING [None]
  - SENSORY DISTURBANCE [None]
  - DYSSTASIA [None]
  - DIZZINESS [None]
  - WEIGHT DECREASED [None]
